FAERS Safety Report 7552234-5 (Version None)
Quarter: 2011Q2

REPORT INFORMATION
  Report Type: 
  Country: None (occurrence: None)
  Receive Date: 20110616
  Receipt Date: 20040428
  Transmission Date: 20111010
  Serious: Yes (Other)
  Sender: FDA-Public Use
  Company Number: PHFR2004GB01444

PATIENT
  Sex: Male

DRUGS (1)
  1. CLOZAPINE [Suspect]
     Indication: SCHIZOPHRENIA
     Dosage: 300MG/DAY
     Route: 048
     Dates: start: 20040309

REACTIONS (6)
  - TACHYCARDIA [None]
  - NEUTROPHIL COUNT INCREASED [None]
  - INFLAMMATION [None]
  - WHITE BLOOD CELL COUNT INCREASED [None]
  - CELLULITIS [None]
  - PYREXIA [None]
